FAERS Safety Report 17789273 (Version 2)
Quarter: 2020Q4

REPORT INFORMATION
  Report Type: Report from Study
  Country: AR (occurrence: AR)
  Receive Date: 20200514
  Receipt Date: 20201121
  Transmission Date: 20210113
  Serious: Yes (Life-Threatening, Hospitalization)
  Sender: FDA-Public Use
  Company Number: PHHY2017AR165514

PATIENT
  Age: 44 Year
  Sex: Female

DRUGS (8)
  1. LIORESAL [Suspect]
     Active Substance: BACLOFEN
     Indication: PRODUCT USED FOR UNKNOWN INDICATION
     Dosage: UNK
     Route: 065
     Dates: start: 201909
  2. LIORESAL [Suspect]
     Active Substance: BACLOFEN
     Dosage: 10 MG
     Route: 065
     Dates: start: 201909
  3. GILENYA [Suspect]
     Active Substance: FINGOLIMOD HYDROCHLORIDE
     Indication: MULTIPLE SCLEROSIS
     Dosage: 0.5 MG, QD
     Route: 065
     Dates: start: 201110, end: 201709
  4. LIORESAL [Suspect]
     Active Substance: BACLOFEN
     Dosage: 5 MG
     Route: 065
     Dates: start: 201909
  5. GILENYA [Suspect]
     Active Substance: FINGOLIMOD HYDROCHLORIDE
     Dosage: 0.5 MG, QD
     Route: 065
     Dates: start: 201110, end: 201910
  6. LIORESAL [Suspect]
     Active Substance: BACLOFEN
     Dosage: 8 MG
     Route: 065
     Dates: start: 201909
  7. SIRDALUD [Suspect]
     Active Substance: TIZANIDINE
     Indication: MUSCLE SPASTICITY
     Dosage: 4 MG, QD
     Route: 065
     Dates: start: 2012, end: 2016
  8. SIRDALUD [Suspect]
     Active Substance: TIZANIDINE
     Dosage: 4 MG, QD
     Route: 065

REACTIONS (12)
  - Onychomycosis [Recovering/Resolving]
  - Spinal cord oedema [Recovering/Resolving]
  - Lymphopenia [Recovering/Resolving]
  - Secondary progressive multiple sclerosis [Recovering/Resolving]
  - Somnolence [Unknown]
  - Gait disturbance [Recovering/Resolving]
  - Lymphocyte count decreased [Recovered/Resolved]
  - Syncope [Recovering/Resolving]
  - Drug intolerance [Unknown]
  - Muscle spasticity [Recovering/Resolving]
  - Fall [Recovering/Resolving]
  - Muscle spasms [Unknown]

NARRATIVE: CASE EVENT DATE: 201709
